FAERS Safety Report 9395610 (Version 2)
Quarter: 2013Q3

REPORT INFORMATION
  Report Type: Spontaneous
  Country: IT (occurrence: IT)
  Receive Date: 20130711
  Receipt Date: 20130807
  Transmission Date: 20140515
  Serious: Yes (Hospitalization)
  Sender: FDA-Public Use
  Company Number: CHPA2013IT010916

PATIENT
  Age: 20 Year
  Sex: Female

DRUGS (2)
  1. IBUPROFEN [Suspect]
     Indication: DRUG ABUSE
     Dosage: 2 DF, ONCE/SINGLE
     Route: 048
     Dates: start: 20130608, end: 20130608
  2. BUPROPION [Suspect]
     Indication: DRUG ABUSE
     Dosage: 20 DF, ONCE/SINGLE
     Route: 048
     Dates: start: 20130608, end: 20130608

REACTIONS (2)
  - Drug abuse [Recovered/Resolved]
  - Confusional state [Unknown]
